FAERS Safety Report 5199818-X (Version None)
Quarter: 2007Q1

REPORT INFORMATION
  Report Type: 
  Country: None (occurrence: None)
  Receive Date: 20070105
  Receipt Date: 20061226
  Transmission Date: 20070707
  Serious: Yes (Hospitalization)
  Sender: FDA-Public Use
  Company Number: US-AVENTIS-200710010EU

PATIENT
  Age: 75 Year
  Sex: Female
  Weight: 96.8 kg

DRUGS (10)
  1. LASIX [Suspect]
     Indication: DRUG USE FOR UNKNOWN INDICATION
     Dosage: DOSE: UNKNOWN DOSAGE
  2. LISINOPRIL HCT [Concomitant]
     Dosage: DOSE: 20/12.5
  3. LOPRESSOR [Concomitant]
     Route: 048
  4. ALLOPURINOL SODIUM [Concomitant]
  5. COUMADIN [Concomitant]
  6. COUMADIN [Concomitant]
  7. TAGAMET [Concomitant]
     Route: 048
  8. HYDROCODONE BITARTRATE [Concomitant]
     Dosage: DOSE: 10/500
  9. CODE UNBROKEN [Concomitant]
     Indication: CARDIOVASCULAR EVENT PROPHYLAXIS
     Dates: start: 20061017
  10. CODE UNBROKEN [Concomitant]
     Dates: start: 20061017

REACTIONS (5)
  - AORTIC ANEURYSM [None]
  - DEHYDRATION [None]
  - DIVERTICULITIS [None]
  - INTERNATIONAL NORMALISED RATIO INCREASED [None]
  - RENAL FAILURE ACUTE [None]
